FAERS Safety Report 12472083 (Version 1)
Quarter: 2016Q2

REPORT INFORMATION
  Report Type: Spontaneous
  Country: US (occurrence: None)
  Receive Date: 20160615
  Receipt Date: 20160615
  Transmission Date: 20160815
  Serious: Yes (Hospitalization)
  Sender: FDA-Public Use
  Company Number: None

PATIENT
  Age: 72 Year
  Sex: Female
  Weight: 72.6 kg

DRUGS (13)
  1. VIT B-12 [Concomitant]
  2. VALSARTAN. [Concomitant]
     Active Substance: VALSARTAN
  3. TRAZODONE [Suspect]
     Active Substance: TRAZODONE HYDROCHLORIDE
  4. NEURONTIN [Suspect]
     Active Substance: GABAPENTIN
  5. PRILOSEC [Concomitant]
     Active Substance: OMEPRAZOLE MAGNESIUM
  6. CLONAZEPAM 0.5MG [Suspect]
     Active Substance: CLONAZEPAM
     Indication: ANXIETY
     Route: 048
  7. PROZAC [Suspect]
     Active Substance: FLUOXETINE HYDROCHLORIDE
  8. MELATONIN [Suspect]
     Active Substance: MELATONIN
  9. APAP [Concomitant]
     Active Substance: ACETAMINOPHEN
  10. CELLCEPT [Concomitant]
     Active Substance: MYCOPHENOLATE MOFETIL\MYCOPHENOLATE MOFETIL HYDROCHLORIDE
  11. BYSTOLIC [Concomitant]
     Active Substance: NEBIVOLOL HYDROCHLORIDE
  12. FLORASTOR [Concomitant]
     Active Substance: SACCHAROMYCES CEREVISIAE
  13. PERCOCET [Suspect]
     Active Substance: ACETAMINOPHEN\OXYCODONE HYDROCHLORIDE
     Indication: PAIN
     Dosage: 10/325MG Q4HR PRN PO?CHRONIC
     Route: 048

REACTIONS (4)
  - Encephalopathy [None]
  - Urinary tract infection [None]
  - Dehydration [None]
  - Acute kidney injury [None]

NARRATIVE: CASE EVENT DATE: 20151014
